FAERS Safety Report 13296559 (Version 2)
Quarter: 2017Q2

REPORT INFORMATION
  Report Type: Spontaneous
  Country: CN (occurrence: CN)
  Receive Date: 20170306
  Receipt Date: 20170623
  Transmission Date: 20170830
  Serious: Yes (Other)
  Sender: FDA-Public Use
  Company Number: CN-SUN PHARMACEUTICAL INDUSTRIES LTD-2017R1-132594

PATIENT
  Age: 45 Year
  Sex: Male

DRUGS (8)
  1. CALCIUM LEVOFOLINATE [Suspect]
     Active Substance: LEVOLEUCOVORIN CALCIUM
     Indication: HEPATOCELLULAR CARCINOMA
     Dosage: 200 MG/M2 ON DAY 1 AND 2
     Route: 065
  2. 5-FLUOROURACIL [Suspect]
     Active Substance: FLUOROURACIL
     Indication: HEPATOCELLULAR CARCINOMA
     Dosage: 400 MG/M2
     Route: 042
  3. LIPIODOL [Suspect]
     Active Substance: ETHIODIZED OIL
     Indication: HEPATOCELLULAR CARCINOMA
     Route: 065
  4. 5-FLUOROURACIL [Suspect]
     Active Substance: FLUOROURACIL
     Dosage: 600 MG/M2 PUMPED FOR 22H ON DAY 1 AND 2, CYCLED EVERY TWO WEEKS FOR SEVEN CYCLES
  5. APATINIB [Suspect]
     Active Substance: APATINIB
     Dosage: 500 MG, DAILY, FROM DAY 4 TO 24
     Route: 048
  6. APATINIB [Suspect]
     Active Substance: APATINIB
     Indication: HEPATOCELLULAR CARCINOMA
     Dosage: 500 MG, DAILY, 1 TO 10 DAYS PER CYCLE
     Route: 065
  7. OXALIPLATIN. [Suspect]
     Active Substance: OXALIPLATIN
     Indication: HEPATOCELLULAR CARCINOMA
     Dosage: 85 MG/M2 ON DAY 1
     Route: 042
  8. TEGAFUR [Suspect]
     Active Substance: TEGAFUR
     Indication: HEPATOCELLULAR CARCINOMA
     Route: 065

REACTIONS (6)
  - Diarrhoea [Unknown]
  - Therapeutic response decreased [Unknown]
  - Hypertension [Unknown]
  - Platelet count decreased [Unknown]
  - Palmar-plantar erythrodysaesthesia syndrome [Unknown]
  - White blood cell count decreased [Unknown]
